FAERS Safety Report 8170898-2 (Version None)
Quarter: 2012Q1

REPORT INFORMATION
  Report Type: 
  Country: None (occurrence: None)
  Receive Date: 20120104
  Receipt Date: 20111115
  Transmission Date: 20120608
  Serious: No
  Sender: FDA-Public Use
  Company Number: 2011HGS-002808

PATIENT
  Age: 46 Year
  Sex: Female
  Weight: 76.6579 kg

DRUGS (20)
  1. SPIRONOLACTONE [Concomitant]
  2. VALIUM [Concomitant]
  3. PERCOCET [Concomitant]
  4. SOMA [Concomitant]
  5. MEDROXYPROGESTERONE [Concomitant]
  6. COUMADIN [Concomitant]
  7. FLUOXETINE [Concomitant]
  8. PLAQUENIL [Concomitant]
  9. COLACE (DOCUSATE SODIUM) [Concomitant]
  10. FENTANYL [Concomitant]
  11. SYNTHROID [Concomitant]
  12. OMEPRAZOLE [Concomitant]
  13. LASIX (LASIX) /SCH/ (FUROSEMIDE, FUROSEMIDE SODIUM) [Concomitant]
  14. KLONOPIN [Concomitant]
  15. VITAMIN D [Concomitant]
  16. BENLYSTA [Suspect]
     Indication: SYSTEMIC LUPUS ERYTHEMATOSUS
     Dosage: 1 IN 28 D, INTRAVENOUS DRIP
     Route: 041
     Dates: start: 20110606, end: 20111102
  17. MIRAPEX [Concomitant]
  18. CELLCEPT [Concomitant]
  19. MELATONIN (MELATONIN) [Concomitant]
  20. SIMVASTATIN [Concomitant]

REACTIONS (3)
  - FLUID RETENTION [None]
  - WEIGHT INCREASED [None]
  - PRURITUS [None]
